FAERS Safety Report 25389578 (Version 1)
Quarter: 2025Q2

REPORT INFORMATION
  Report Type: Report from Study
  Country: CA (occurrence: CA)
  Receive Date: 20250603
  Receipt Date: 20250603
  Transmission Date: 20250717
  Serious: Yes (Other)
  Sender: NOVARTIS
  Company Number: CA-002147023-NVSC2025CA086696

PATIENT
  Age: 44 Year
  Sex: Female

DRUGS (8)
  1. KESIMPTA [Suspect]
     Active Substance: OFATUMUMAB
     Indication: Relapsing-remitting multiple sclerosis
     Dosage: 20 MG, QMO
     Route: 058
     Dates: start: 20240510
  2. BACLOFEN [Concomitant]
     Active Substance: BACLOFEN
     Indication: Product used for unknown indication
     Dosage: 10 MG, BID
     Route: 065
  3. BACLOFEN [Concomitant]
     Active Substance: BACLOFEN
     Dosage: 2 DOSAGE FORM, QD (NIGHT TIME)
     Route: 065
  4. VENLAFAXINE [Concomitant]
     Active Substance: VENLAFAXINE HYDROCHLORIDE
     Indication: Product used for unknown indication
     Route: 065
  5. BISOPROLOL [Concomitant]
     Active Substance: BISOPROLOL
     Indication: Product used for unknown indication
     Route: 065
  6. MIRABEGRON [Concomitant]
     Active Substance: MIRABEGRON
     Indication: Bladder disorder
     Route: 065
  7. ASPIRIN [Concomitant]
     Active Substance: ASPIRIN
     Indication: Product used for unknown indication
     Route: 065
  8. VITAMIN D [Concomitant]
     Active Substance: VITAMIN D NOS
     Indication: Product used for unknown indication
     Route: 065

REACTIONS (15)
  - Multiple sclerosis relapse [Unknown]
  - Multiple sclerosis [Unknown]
  - Muscular weakness [Unknown]
  - Pain in extremity [Unknown]
  - Gait disturbance [Unknown]
  - Hypoaesthesia [Unknown]
  - Tremor [Unknown]
  - Muscle spasms [Unknown]
  - Hyperaesthesia [Unknown]
  - Mental disorder [Unknown]
  - Dysstasia [Unknown]
  - Decreased vibratory sense [Unknown]
  - Reflexes abnormal [Unknown]
  - Movement disorder [Unknown]
  - Ataxia [Unknown]

NARRATIVE: CASE EVENT DATE: 20241121
